FAERS Safety Report 4901684-1 (Version None)
Quarter: 2006Q1

REPORT INFORMATION
  Report Type: 
  Country: None (occurrence: None)
  Receive Date: 20060206
  Receipt Date: 20051101
  Transmission Date: 20060701
  Serious: No
  Sender: FDA-Public Use
  Company Number: US-BRISTOL-MYERS SQUIBB COMPANY-13163340

PATIENT
  Age: 70 Year
  Sex: Female

DRUGS (1)
  1. TAXOL [Suspect]
     Indication: NEOPLASM MALIGNANT
     Route: 042

REACTIONS (4)
  - BALANCE DISORDER [None]
  - EYE DISORDER [None]
  - SPEECH DISORDER [None]
  - SPINAL DISORDER [None]
